FAERS Safety Report 19840571 (Version 1)
Quarter: 2021Q3

REPORT INFORMATION
  Report Type: Spontaneous
  Country: US (occurrence: US)
  Receive Date: 20210915
  Receipt Date: 20210915
  Transmission Date: 20211014
  Serious: Yes (Other)
  Sender: FDA-Public Use
  Company Number: US-PFIZER INC-202101147466

PATIENT
  Age: 48 Year
  Sex: Female

DRUGS (2)
  1. IBRANCE [Suspect]
     Active Substance: PALBOCICLIB
     Indication: BREAST CANCER FEMALE
     Dosage: 100 MG, CYCLIC (DAILY FOR 21 CONSECUTIVE DAYS, FOLLOWED BY 7 DAYS OFF OF A 28 DAY CYCLE)
     Route: 048
     Dates: start: 201704, end: 202108
  2. IBRANCE [Suspect]
     Active Substance: PALBOCICLIB
     Dosage: 100 MG, CYCLIC (21 CONSECUTIVE DAYS, FOLLOWED BY 7 DAYS OFF)
     Route: 048
     Dates: start: 202108, end: 2021

REACTIONS (3)
  - Headache [Not Recovered/Not Resolved]
  - Oral pain [Not Recovered/Not Resolved]
  - Abdominal discomfort [Unknown]

NARRATIVE: CASE EVENT DATE: 202108
